FAERS Safety Report 8984455 (Version 3)
Quarter: 2013Q1

REPORT INFORMATION
  Report Type: Spontaneous
  Country: US (occurrence: US)
  Receive Date: 20121225
  Receipt Date: 20130125
  Transmission Date: 20140127
  Serious: Yes (Other)
  Sender: FDA-Public Use
  Company Number: US-SANOFI-AVENTIS-2012SA090990

PATIENT
  Age: 84 Year
  Sex: Male
  Weight: 103.18 kg

DRUGS (6)
  1. LANTUS SOLOSTAR [Suspect]
     Indication: TYPE 2 DIABETES MELLITUS
     Dosage: ALSO REPORTED AS 34 AND 35 UNITS DAILY DOSE:38 UNIT(S)
     Route: 058
     Dates: start: 20120712
  2. LANTUS SOLOSTAR [Suspect]
     Indication: TYPE 2 DIABETES MELLITUS
     Dosage: ALSO REPORTED AS 34 AND 35 UNITS DAILY DOSE:38 UNIT(S)
     Route: 058
     Dates: start: 20120712
  3. SOLOSTAR [Suspect]
     Indication: TYPE 2 DIABETES MELLITUS
     Dates: start: 20120712
  4. SOLOSTAR [Suspect]
     Indication: TYPE 2 DIABETES MELLITUS
     Dates: start: 20120712
  5. ASPIRIN [Concomitant]
     Indication: THROMBOSIS PROPHYLAXIS
     Dosage: ONE PER DAY
  6. LIPITOR /UNK/ [Concomitant]
     Indication: BLOOD CHOLESTEROL ABNORMAL

REACTIONS (3)
  - Gallbladder operation [Recovered/Resolved with Sequelae]
  - Post procedural infection [Unknown]
  - Blood glucose increased [Unknown]
